FAERS Safety Report 25529609 (Version 2)
Quarter: 2025Q4

REPORT INFORMATION
  Report Type: Spontaneous
  Country: JP (occurrence: JP)
  Receive Date: 20250708
  Receipt Date: 20251013
  Transmission Date: 20260117
  Serious: Yes (Other)
  Sender: PFIZER
  Company Number: JP-ONO-2025JP011596

PATIENT
  Age: 85 Year
  Sex: Female
  Weight: 36 kg

DRUGS (6)
  1. BRAFTOVI [Suspect]
     Active Substance: ENCORAFENIB
     Indication: Thyroid cancer
     Dosage: 450 MG, DAILY (EVERYDAY)
     Route: 048
     Dates: start: 20250620, end: 20250625
  2. BRAFTOVI [Suspect]
     Active Substance: ENCORAFENIB
     Dosage: 300 MG, DAILY
     Route: 048
     Dates: start: 20250715, end: 202507
  3. BRAFTOVI [Suspect]
     Active Substance: ENCORAFENIB
     Dosage: 225 MG
     Route: 048
     Dates: start: 20250819, end: 2025
  4. MEKTOVI [Suspect]
     Active Substance: BINIMETINIB
     Indication: Thyroid cancer
     Dosage: 45 MG, 2X/DAY (EVERY 12 HOURS)
     Route: 048
     Dates: start: 20250620, end: 20250625
  5. MEKTOVI [Suspect]
     Active Substance: BINIMETINIB
     Dosage: 30 MG, 2X/DAY (EVERY 12 HOURS)
     Route: 048
     Dates: start: 20250715, end: 202507
  6. MEKTOVI [Suspect]
     Active Substance: BINIMETINIB
     Dosage: 30 MG
     Route: 048
     Dates: start: 20250819, end: 2025

REACTIONS (2)
  - Serous retinal detachment [Recovered/Resolved]
  - Blister [Unknown]

NARRATIVE: CASE EVENT DATE: 20250624
